FAERS Safety Report 5409790-2 (Version None)
Quarter: 2007Q3

REPORT INFORMATION
  Report Type: 
  Country: None (occurrence: None)
  Receive Date: 20070809
  Receipt Date: 20070730
  Transmission Date: 20080115
  Serious: Yes (Death)
  Sender: FDA-Public Use
  Company Number: CN-ROCHE-509169

PATIENT

DRUGS (3)
  1. ROCEPHIN [Suspect]
     Indication: DRUG USE FOR UNKNOWN INDICATION
     Dosage: ROUTE REPORTED AS I.V.GTT.
     Route: 042
     Dates: start: 20070101, end: 20070101
  2. UNSPECIFIED DRUG [Concomitant]
  3. UNSPECIFIED DRUG [Concomitant]

REACTIONS (1)
  - DEATH [None]
